FAERS Safety Report 6744740-8 (Version None)
Quarter: 2010Q2

REPORT INFORMATION
  Report Type: 
  Country: None (occurrence: None)
  Receive Date: 20100527
  Receipt Date: 20090811
  Transmission Date: 20101027
  Serious: No
  Sender: FDA-Public Use
  Company Number: FDAAERSTESTINGFORCHDC28

PATIENT

DRUGS (1)
  1. KALETRA [Suspect]
     Indication: HIV INFECTION

REACTIONS (1)
  - BLOOD TRIGLYCERIDES INCREASED [None]
